FAERS Safety Report 8863320 (Version 1)
Quarter: 2012Q4

REPORT INFORMATION
  Report Type: 
  Country: ZA (occurrence: ZA)
  Receive Date: 20121025
  Receipt Date: 20121025
  Transmission Date: 20130627
  Serious: Yes (Other)
  Sender: FDA-Public Use
  Company Number: ZA-B.I. PHARMACEUTICALS,INC./RIDGEFIELD-2012-AP-00904ZA

PATIENT
  Sex: Male
  Weight: 83 kg

DRUGS (5)
  1. PRADAXA [Suspect]
     Indication: ATRIAL FIBRILLATION
     Dosage: 220 mg
     Route: 048
     Dates: start: 20120601, end: 20121015
  2. COVERSYL [Concomitant]
     Indication: MYOCARDIAL ISCHAEMIA
     Dosage: 4 mg
     Dates: start: 2006
  3. COVERSYL [Concomitant]
     Indication: HYPERTENSION
  4. INEGY 10 [Concomitant]
     Indication: HYPERLIPIDAEMIA
     Dosage: 20 mg
     Dates: start: 2010
  5. INEGY 10 [Concomitant]
     Indication: CORONARY ARTERY DISEASE

REACTIONS (1)
  - Fatigue [Unknown]
